FAERS Safety Report 8850347 (Version 1)
Quarter: 2012Q4

REPORT INFORMATION
  Report Type: 
  Country: US (occurrence: US)
  Receive Date: 20121019
  Receipt Date: 20121019
  Transmission Date: 20130627
  Serious: Yes (Other)
  Sender: FDA-Public Use
  Company Number: US-US-EMD SERONO, INC.-7167826

PATIENT
  Age: 34 Year
  Sex: Female

DRUGS (1)
  1. REBIF [Suspect]
     Indication: MULTIPLE SCLEROSIS
     Route: 058
     Dates: start: 20091013

REACTIONS (6)
  - Appendicectomy [Unknown]
  - Oophorectomy [Unknown]
  - Sensation of heaviness [Unknown]
  - Peripheral coldness [Unknown]
  - Pyrexia [Unknown]
  - Pain in extremity [Unknown]
